FAERS Safety Report 6127800-4 (Version None)
Quarter: 2009Q1

REPORT INFORMATION
  Report Type: 
  Country: None (occurrence: None)
  Receive Date: 20090323
  Receipt Date: 20090312
  Transmission Date: 20090719
  Serious: Yes (Other)
  Sender: FDA-Public Use
  Company Number: US-AVENTIS-200912026US

PATIENT
  Sex: Female

DRUGS (7)
  1. LOVENOX [Suspect]
     Indication: FACTOR X DEFICIENCY
     Dates: start: 20040430
  2. LOVENOX [Suspect]
     Dosage: DOSE: 80 MG PLUS 80 MG
  3. LOVENOX [Suspect]
     Dosage: DOSE: 80 MG PLUS 80 MG
     Dates: start: 20090301
  4. LOVENOX (VIAL) [Suspect]
     Indication: FACTOR X DEFICIENCY
     Dates: start: 20090302, end: 20090306
  5. ASPIRIN [Concomitant]
     Dosage: DOSE QUANTITY: 325
  6. PRILOSEC [Concomitant]
     Dosage: DOSE: UNK
  7. PROTONIX [Concomitant]
     Dosage: DOSE: UNK

REACTIONS (5)
  - ABDOMINAL PAIN UPPER [None]
  - CEREBROVASCULAR ACCIDENT [None]
  - EPILEPSY [None]
  - FATIGUE [None]
  - MYOCARDIAL INFARCTION [None]
